FAERS Safety Report 7486250-9 (Version None)
Quarter: 2011Q2

REPORT INFORMATION
  Report Type: 
  Country: None (occurrence: None)
  Receive Date: 20110517
  Receipt Date: 20110308
  Transmission Date: 20111010
  Serious: No
  Sender: FDA-Public Use
  Company Number: A0917870A

PATIENT
  Sex: Male

DRUGS (1)
  1. VOTRIENT [Suspect]
     Dosage: 800MG PER DAY
     Route: 048
     Dates: start: 20110228, end: 20110301

REACTIONS (8)
  - GAIT DISTURBANCE [None]
  - INSOMNIA [None]
  - PAIN [None]
  - ADVERSE DRUG REACTION [None]
  - DIARRHOEA [None]
  - ABDOMINAL PAIN [None]
  - PAIN IN EXTREMITY [None]
  - DYSPHONIA [None]
